FAERS Safety Report 7368645-7 (Version None)
Quarter: 2011Q1

REPORT INFORMATION
  Report Type: 
  Country: None (occurrence: None)
  Receive Date: 20110321
  Receipt Date: 20110321
  Transmission Date: 20110831
  Serious: No
  Sender: FDA-Public Use
  Company Number: None

PATIENT

DRUGS (1)
  1. FENTANYL [Suspect]
     Indication: BACK PAIN
     Dosage: 1 PATCH EVERY 3 DAYS TRANSDERMAL
     Route: 062
     Dates: start: 20110209, end: 20110318

REACTIONS (6)
  - NAUSEA [None]
  - HYPERHIDROSIS [None]
  - DRUG WITHDRAWAL SYNDROME [None]
  - PAIN [None]
  - HOT FLUSH [None]
  - DRUG INEFFECTIVE [None]
